FAERS Safety Report 6774527-1 (Version None)
Quarter: 2010Q2

REPORT INFORMATION
  Report Type: 
  Country: None (occurrence: None)
  Receive Date: 20100617
  Receipt Date: 20100614
  Transmission Date: 20101027
  Serious: Yes (Death)
  Sender: FDA-Public Use
  Company Number: PHHY2010BR38805

PATIENT
  Age: 88 Year
  Sex: Female

DRUGS (1)
  1. EXELON [Suspect]
     Indication: AMNESIA
     Dosage: 1 DF, BID
     Route: 048

REACTIONS (2)
  - CARDIAC DISORDER [None]
  - GASTROINTESTINAL CARCINOMA [None]
